FAERS Safety Report 8377941-6 (Version None)
Quarter: 2012Q2

REPORT INFORMATION
  Report Type: 
  Country: None (occurrence: None)
  Receive Date: 20120522
  Receipt Date: 20120521
  Transmission Date: 20120825
  Serious: Yes (Disabling)
  Sender: FDA-Public Use
  Company Number: GB-BAYER-2012-049987

PATIENT
  Sex: Female
  Weight: 48 kg

DRUGS (1)
  1. NEXAVAR [Suspect]
     Indication: HEPATIC NEOPLASM MALIGNANT
     Dosage: 200 MG, BID
     Dates: start: 20120501, end: 20120501

REACTIONS (3)
  - FATIGUE [None]
  - BEDRIDDEN [None]
  - DYSSTASIA [None]
